FAERS Safety Report 6636380-6 (Version None)
Quarter: 2010Q1

REPORT INFORMATION
  Report Type: 
  Country: None (occurrence: None)
  Receive Date: 20100226
  Receipt Date: 20090622
  Transmission Date: 20100710
  Serious: Yes (Hospitalization)
  Sender: FDA-Public Use
  Company Number: WAES 0509USA02603

PATIENT
  Age: 58 Year
  Sex: Female
  Weight: 58.9676 kg

DRUGS (11)
  1. PRINIVIL [Suspect]
     Indication: ACUTE MYOCARDIAL INFARCTION
     Dosage: PO
     Route: 048
     Dates: start: 20040501, end: 20040602
  2. CELLUVISC [Concomitant]
  3. COUMADIN [Concomitant]
  4. FOSAMAX [Concomitant]
  5. LEVOXYL [Concomitant]
  6. LIPITOR [Concomitant]
  7. PLAVIX [Concomitant]
  8. TOPROL-XL [Concomitant]
  9. ASPIRIN [Concomitant]
  10. DIGOXIN [Concomitant]
  11. VITAMINS (UNSPECIFIED) [Concomitant]

REACTIONS (1)
  - HYPERKALAEMIA [None]
